FAERS Safety Report 4913503-8 (Version None)
Quarter: 2006Q1

REPORT INFORMATION
  Report Type: 
  Country: None (occurrence: None)
  Receive Date: 20060216
  Receipt Date: 20060206
  Transmission Date: 20060701
  Serious: Yes (Other)
  Sender: FDA-Public Use
  Company Number: US-JNJFOC-20060201436

PATIENT
  Sex: Male
  Weight: 89.81 kg

DRUGS (8)
  1. INFLIXIMAB [Suspect]
     Route: 042
  2. INFLIXIMAB [Suspect]
     Route: 042
  3. INFLIXIMAB [Suspect]
     Route: 042
  4. INFLIXIMAB [Suspect]
     Route: 042
  5. INFLIXIMAB [Suspect]
     Indication: CROHN'S DISEASE
     Dosage: 4 INFUSIONS PRIOR TO BASELINE.
     Route: 042
  6. MESALAMINE [Concomitant]
     Indication: CROHN'S DISEASE
  7. ANTISPASMODIC [Concomitant]
     Indication: CROHN'S DISEASE
  8. PREDNISONE [Concomitant]
     Indication: CROHN'S DISEASE

REACTIONS (1)
  - NECROSIS ISCHAEMIC [None]
